FAERS Safety Report 10031351 (Version 1)
Quarter: 2014Q1

REPORT INFORMATION
  Report Type: Spontaneous
  Country: US (occurrence: None)
  Receive Date: 20140306
  Receipt Date: 20140306
  Transmission Date: 20141002
  Serious: Yes (Disabling)
  Sender: FDA-Public Use
  Company Number: 163-21880-12023141

PATIENT
  Age: 65 Year
  Sex: Female

DRUGS (15)
  1. REVLIMID (LENALIDOMIDE) (25 MILLIGRAM, CAPSULES) [Suspect]
     Indication: PLASMA CELL MYELOMA
     Dosage: 1 IN 1
     Route: 048
     Dates: start: 200905
  2. ACYCLOVIR (ACICLOVIR) (ACICLOVIR) [Concomitant]
  3. ASPIRIN (ACETYLSALICYLIC ACID) [Concomitant]
  4. CALCIUM +D (OS-CAL) [Concomitant]
  5. FISH OIL [Concomitant]
  6. IRON [Concomitant]
  7. LEVOTHYROXINE SODIUM [Concomitant]
  8. OSTEO BI-FLEX JOINT SHIELD (OSTEO BI-FLEX) [Concomitant]
  9. VELCADE (BORTEZOMIB) [Concomitant]
  10. DECADRON (DEXAMETHASONE) [Concomitant]
  11. FERROUS SULFATE [Concomitant]
  12. MULTIPLE VITAMIN (MULTIVITAMINS) [Concomitant]
  13. OMEGA-3 FATTY ACIDS [Concomitant]
  14. DULCOLAX (BISACODYL) [Concomitant]
  15. CYTOXAN (CYCLOPHOSPHAMIDE) [Concomitant]

REACTIONS (5)
  - Plasma cell myeloma [None]
  - Infection [None]
  - Rash [None]
  - Platelet count decreased [None]
  - White blood cell count decreased [None]
